FAERS Safety Report 9306850 (Version 2)
Quarter: 2013Q2

REPORT INFORMATION
  Report Type: Report from Study
  Country: US (occurrence: US)
  Receive Date: 20130523
  Receipt Date: 20130618
  Transmission Date: 20140414
  Serious: Yes (Life-Threatening, Other)
  Sender: FDA-Public Use
  Company Number: US-MILLENNIUM PHARMACEUTICALS, INC.-2013-03970

PATIENT
  Age: 23 Year
  Sex: Male
  Weight: 116.55 kg

DRUGS (6)
  1. VELCADE [Suspect]
     Indication: ACUTE MYELOID LEUKAEMIA RECURRENT
     Dosage: 1.0 MG/M2, CYCLIC
     Route: 058
     Dates: start: 20130514
  2. MIDOSTAURIN [Suspect]
     Indication: ACUTE MYELOID LEUKAEMIA RECURRENT
     Dosage: 50 MG, CYCLIC
     Route: 048
     Dates: start: 20130507
  3. MITOXANTRONE HYDROCHLORIDE [Suspect]
     Indication: ACUTE MYELOID LEUKAEMIA RECURRENT
     Dosage: 4 MG/M2, CYCLIC
     Route: 065
     Dates: start: 20130507
  4. CYTARABINE [Suspect]
     Indication: ACUTE MYELOID LEUKAEMIA RECURRENT
     Dosage: 1 MG/M2, CYCLIC
     Route: 065
     Dates: start: 20130507
  5. ETOPOSIDE [Suspect]
     Indication: ACUTE MYELOID LEUKAEMIA RECURRENT
     Dosage: 40 MG/M2, CYCLIC
     Route: 065
     Dates: start: 20130507
  6. ALBUTEROL                          /00139501/ [Concomitant]
     Indication: ASTHMA
     Route: 055

REACTIONS (3)
  - Hypertension [Recovered/Resolved]
  - Sepsis [Recovered/Resolved]
  - Febrile neutropenia [Recovered/Resolved]
